FAERS Safety Report 11888727 (Version 1)
Quarter: 2016Q1

REPORT INFORMATION
  Report Type: Spontaneous
  Country: US (occurrence: US)
  Receive Date: 20160105
  Receipt Date: 20160105
  Transmission Date: 20160526
  Serious: Yes (Congenital Anomaly, Other)
  Sender: FDA-Public Use
  Company Number: US-TEVA-623200USA

PATIENT
  Sex: Male
  Weight: 2.27 kg

DRUGS (1)
  1. PLAN B ONE-STEP [Suspect]
     Active Substance: LEVONORGESTREL
     Route: 064

REACTIONS (3)
  - Inguinal hernia [Unknown]
  - Hypospadias [Unknown]
  - Perinatal stroke [Unknown]
